FAERS Safety Report 25599927 (Version 2)
Quarter: 2025Q3

REPORT INFORMATION
  Report Type: Other
  Country: CA (occurrence: CA)
  Receive Date: 20250724
  Receipt Date: 20250801
  Transmission Date: 20251021
  Serious: Yes (Other)
  Sender: APOTEX
  Company Number: CA-APOTEX-2025AP000068

PATIENT
  Age: 53 Year
  Sex: Female

DRUGS (4)
  1. IMATINIB [Suspect]
     Active Substance: IMATINIB
     Indication: Chronic myeloid leukaemia
     Dosage: 400 MILLIGRAM, QD
     Route: 048
     Dates: start: 20241231, end: 202501
  2. IMATINIB [Suspect]
     Active Substance: IMATINIB
     Dosage: 400 MILLIGRAM, QD
     Route: 048
     Dates: start: 2025, end: 20250205
  3. IMATINIB [Suspect]
     Active Substance: IMATINIB
     Dosage: 400 MILLIGRAM, QD
     Route: 048
     Dates: start: 2025, end: 2025
  4. CAMBIA [Concomitant]
     Active Substance: DICLOFENAC POTASSIUM
     Indication: Migraine
     Route: 065

REACTIONS (18)
  - Liver injury [Unknown]
  - Oral discomfort [Unknown]
  - Dysphonia [Unknown]
  - Acne [Unknown]
  - Hyperacusis [Unknown]
  - Incorrect dose administered [Unknown]
  - Emotional distress [Unknown]
  - Oral pain [Unknown]
  - Product solubility abnormal [Unknown]
  - Product physical issue [Unknown]
  - Toxicity to various agents [Unknown]
  - Drug hypersensitivity [Unknown]
  - Dysphagia [Unknown]
  - Diarrhoea [Recovering/Resolving]
  - Nausea [Unknown]
  - Stomatitis [Unknown]
  - Migraine [Unknown]
  - Pruritus [Unknown]

NARRATIVE: CASE EVENT DATE: 20241231
